FAERS Safety Report 5648727-8 (Version None)
Quarter: 2008Q1

REPORT INFORMATION
  Report Type: 
  Country: None (occurrence: None)
  Receive Date: 20080303
  Receipt Date: 20080303
  Transmission Date: 20080703
  Serious: Yes (Hospitalization, Disabling)
  Sender: FDA-Public Use
  Company Number: None

PATIENT
  Age: 31 Year
  Sex: Male
  Weight: 106.5953 kg

DRUGS (2)
  1. ARTHRITIS HOT CHATHAM [Suspect]
     Indication: BACK PAIN
     Dosage: ENOUGH TO COVER AFFECTED AREA AS NEEDED TOP
     Route: 061
     Dates: start: 20080229, end: 20080229
  2. ARTHRITIS HOT CHATHAM [Suspect]
     Indication: INTERVERTEBRAL DISC PROTRUSION
     Dosage: ENOUGH TO COVER AFFECTED AREA AS NEEDED TOP
     Route: 061
     Dates: start: 20080229, end: 20080229

REACTIONS (2)
  - APPLICATION SITE ERYTHEMA [None]
  - APPLICATION SITE IRRITATION [None]
